FAERS Safety Report 7352275-7 (Version None)
Quarter: 2011Q1

REPORT INFORMATION
  Report Type: 
  Country: None (occurrence: None)
  Receive Date: 20110315
  Receipt Date: 20110308
  Transmission Date: 20110831
  Serious: Yes (Other)
  Sender: FDA-Public Use
  Company Number: FR-ELI_LILLY_AND_COMPANY-FR201103001008

PATIENT
  Age: 60 Year
  Sex: Female
  Weight: 57 kg

DRUGS (3)
  1. OPTRUMA [Suspect]
     Indication: OSTEOPOROSIS
     Dosage: 60 MG, DAILY (1/D)
     Route: 048
     Dates: start: 20101101, end: 20110106
  2. TIMOPTOL [Concomitant]
     Indication: GLAUCOMA
     Dates: start: 20080101
  3. OPTRUMA [Suspect]
     Dosage: 60 MG, DAILY (1/D)
     Route: 048
     Dates: start: 20110201, end: 20110201

REACTIONS (9)
  - VOMITING [None]
  - MYALGIA [None]
  - DECREASED APPETITE [None]
  - DIARRHOEA [None]
  - CHILLS [None]
  - BONE PAIN [None]
  - PYREXIA [None]
  - GASTROINTESTINAL DISORDER [None]
  - GASTROENTERITIS [None]
